FAERS Safety Report 17662664 (Version 2)
Quarter: 2020Q2

REPORT INFORMATION
  Report Type: Report from Study
  Country: SK (occurrence: SK)
  Receive Date: 20200413
  Receipt Date: 20200428
  Transmission Date: 20200713
  Serious: Yes (Hospitalization)
  Sender: FDA-Public Use
  Company Number: SK-PFIZER INC-2020144920

PATIENT
  Age: 61 Year
  Sex: Male
  Weight: 75.5 kg

DRUGS (6)
  1. TOFACITINIB CITRATE [Suspect]
     Active Substance: TOFACITINIB CITRATE
     Dosage: 5 MG, 2X/DAY
     Route: 048
     Dates: start: 20190224, end: 20191125
  2. TREXAN [METHOTREXATE] [Suspect]
     Active Substance: METHOTREXATE
     Indication: RHEUMATOID ARTHRITIS
     Dosage: 25.0 MG, ONCE A WEEK
     Route: 048
     Dates: start: 20151209, end: 20191125
  3. RABAKIR [Concomitant]
     Indication: NEURALGIA
     Dosage: 75.0 MG, 1X/DAY
     Route: 048
     Dates: start: 20160623
  4. FOLIC ACID. [Concomitant]
     Active Substance: FOLIC ACID
     Indication: RHEUMATOID ARTHRITIS
     Dosage: 10.0 MG, ONCE A WEEK
     Route: 048
     Dates: start: 20150713
  5. MELOXICAM. [Concomitant]
     Active Substance: MELOXICAM
     Indication: RHEUMATOID ARTHRITIS
     Dosage: 15.0 MG, 1X/DAY
     Route: 048
     Dates: start: 20160606, end: 20191125
  6. TOFACITINIB CITRATE [Suspect]
     Active Substance: TOFACITINIB CITRATE
     Indication: RHEUMATOID ARTHRITIS
     Dosage: 10 MG, 2X/DAY
     Route: 048
     Dates: start: 20161212, end: 20190223

REACTIONS (2)
  - Abscess limb [Recovered/Resolved with Sequelae]
  - Gangrene [Recovered/Resolved with Sequelae]

NARRATIVE: CASE EVENT DATE: 20191128
